FAERS Safety Report 9348485 (Version 2)
Quarter: 2013Q2

REPORT INFORMATION
  Report Type: Report from Study
  Country: US (occurrence: US)
  Receive Date: 20130614
  Receipt Date: 20130620
  Transmission Date: 20140414
  Serious: Yes (Hospitalization, Other)
  Sender: FDA-Public Use
  Company Number: US-ASTRAZENECA-2013SE23046

PATIENT
  Age: 18431 Day
  Sex: Female

DRUGS (48)
  1. AZD6140 [Suspect]
     Indication: CORONARY ARTERY DISEASE
     Route: 048
     Dates: start: 20130129, end: 20130401
  2. LISINOPRIL [Concomitant]
     Indication: HYPERTENSION
     Route: 048
  3. QUININE SULFATE [Concomitant]
     Indication: MUSCLE SPASMS
     Route: 048
     Dates: start: 20130402
  4. MANNITOL [Concomitant]
     Indication: PREMEDICATION
     Route: 042
     Dates: start: 20130405, end: 20130405
  5. AMICAR [Concomitant]
     Indication: DRUG THERAPY
     Route: 042
     Dates: start: 20130405, end: 20130405
  6. ZOCOR [Concomitant]
     Indication: HYPERCHOLESTEROLAEMIA
     Route: 048
  7. NITROSTAT [Concomitant]
     Indication: CORONARY ARTERY DISEASE
     Route: 048
     Dates: start: 20130402
  8. HEPARIN [Concomitant]
     Indication: DRUG THERAPY
     Route: 042
     Dates: start: 20130405, end: 20130405
  9. LORATADINE [Concomitant]
     Indication: SEASONAL ALLERGY
     Route: 048
  10. MUPIROCIN [Concomitant]
     Indication: PROMOTION OF WOUND HEALING
     Route: 061
     Dates: start: 20130406
  11. PLAVIX [Concomitant]
     Indication: CORONARY ARTERY DISEASE
     Route: 048
     Dates: end: 20130128
  12. PLAVIX [Concomitant]
     Indication: CORONARY ARTERY DISEASE
     Route: 048
     Dates: start: 20130407
  13. NORMOSOL [Concomitant]
     Indication: DRUG THERAPY
     Route: 042
     Dates: start: 20130405, end: 20130405
  14. MUCOUS RELIEF DM [Concomitant]
     Indication: SEASONAL ALLERGY
     Route: 048
  15. NICODERM PATCH [Concomitant]
     Indication: SMOKING CESSATION THERAPY
     Route: 062
     Dates: start: 20130402
  16. VISIPAQUE [Concomitant]
     Indication: SCAN WITH CONTRAST
     Route: 042
     Dates: start: 20130402, end: 20130502
  17. ALBUMIN [Concomitant]
     Indication: DRUG THERAPY
     Route: 042
     Dates: start: 20130405, end: 20130405
  18. NEOSYNEPHRINE [Concomitant]
     Indication: DRUG THERAPY
     Route: 042
     Dates: start: 20130405, end: 20130405
  19. SPIRIVA [Concomitant]
     Indication: CHRONIC OBSTRUCTIVE PULMONARY DISEASE
     Route: 055
  20. AMIODARONE [Concomitant]
     Indication: ARRHYTHMIA PROPHYLAXIS
     Route: 048
     Dates: start: 20130403, end: 20130417
  21. PHAZYME [Concomitant]
     Indication: FLATULENCE
     Route: 048
     Dates: start: 20130402
  22. HIGH K BLOOD CARDIOPLEGIA [Concomitant]
     Indication: DRUG THERAPY
     Route: 042
     Dates: start: 20130405, end: 20130405
  23. LOW K BLOOD CARDIOPLEGIA [Concomitant]
     Indication: DRUG THERAPY
     Route: 042
     Dates: start: 20130405, end: 20130405
  24. TRIAMETERENE/HCTZ [Concomitant]
     Indication: OEDEMA
     Route: 048
  25. ALBUTROL HHN [Concomitant]
     Indication: CHRONIC OBSTRUCTIVE PULMONARY DISEASE
  26. SOLUMEDROL [Concomitant]
     Indication: DRUG THERAPY
     Route: 042
     Dates: start: 20130405, end: 20130405
  27. METOPROLOL [Concomitant]
     Indication: TACHYCARDIA
     Route: 048
  28. VIIBRYD [Concomitant]
     Indication: DEPRESSION
     Route: 048
     Dates: start: 20130124
  29. NAPROXEN [Concomitant]
     Indication: HEADACHE
     Route: 048
  30. NAPROXEN [Concomitant]
     Indication: MUSCULOSKELETAL PAIN
     Route: 048
  31. DULERA [Concomitant]
     Indication: CHRONIC OBSTRUCTIVE PULMONARY DISEASE
     Route: 055
  32. PERIDEX [Concomitant]
     Indication: GINGIVITIS
     Route: 048
     Dates: start: 20130407, end: 20130413
  33. CALCIUM CHLORIDE [Concomitant]
     Indication: DRUG THERAPY
     Route: 042
     Dates: start: 20130405, end: 20130405
  34. CINCHENA [Concomitant]
     Indication: MUSCLE SPASMS
     Route: 048
  35. ACOITUM NAP [Concomitant]
     Indication: MUSCLE SPASMS
     Route: 048
  36. GRAPHALIUMPOLYLEDUMPAL [Concomitant]
     Indication: MUSCLE SPASMS
     Route: 048
  37. MAGNESIA PHOS [Concomitant]
     Indication: MUSCLE SPASMS
     Route: 048
  38. RHUS TOX [Concomitant]
     Indication: MUSCLE SPASMS
     Route: 048
  39. VISCUM ALB [Concomitant]
     Indication: MUSCLE SPASMS
     Route: 048
  40. NOVOLOG [Concomitant]
     Indication: TYPE 2 DIABETES MELLITUS
     Route: 058
  41. LEVEMIR FLEXPEN [Concomitant]
     Indication: TYPE 2 DIABETES MELLITUS
     Route: 058
  42. SODIUM BICARB [Concomitant]
     Indication: DRUG THERAPY
     Route: 042
     Dates: start: 20130405, end: 20130405
  43. MAGNESIUM SULFATE [Concomitant]
     Indication: DRUG THERAPY
     Route: 042
     Dates: start: 20130405, end: 20130405
  44. 0.9% NORMAL SALINE [Concomitant]
     Indication: DRUG THERAPY
     Route: 042
     Dates: start: 20130405, end: 20130405
  45. NITROGLYCERIN [Concomitant]
     Indication: DRUG THERAPY
     Route: 042
     Dates: start: 20130405, end: 20130405
  46. CELL SAVER [Concomitant]
     Indication: DRUG THERAPY
     Route: 042
     Dates: start: 20130405, end: 20130405
  47. ASA [Concomitant]
     Route: 048
     Dates: end: 20130127
  48. ASA [Concomitant]
     Route: 048
     Dates: start: 20130128

REACTIONS (4)
  - Coagulopathy [Recovered/Resolved]
  - Respiratory failure [Recovered/Resolved]
  - Coronary artery disease [Recovered/Resolved]
  - Pneumonia [Not Recovered/Not Resolved]
